FAERS Safety Report 5023530-0 (Version None)
Quarter: 2006Q2

REPORT INFORMATION
  Report Type: 
  Country: None (occurrence: None)
  Receive Date: 20060612
  Receipt Date: 20060608
  Transmission Date: 20061013
  Serious: Yes (Hospitalization)
  Sender: FDA-Public Use
  Company Number: FR-GLAXOSMITHKLINE-B0426737A

PATIENT
  Age: 14 Month
  Sex: Female
  Weight: 12 kg

DRUGS (3)
  1. CLAMOXYL [Suspect]
     Indication: COUGH
     Dosage: 125MG THREE TIMES PER DAY
     Route: 048
     Dates: start: 20060504, end: 20060508
  2. MEGAMYLASE [Suspect]
     Indication: COUGH
     Dosage: 5ML THREE TIMES PER DAY
     Route: 048
     Dates: start: 20060504, end: 20060508
  3. CLARITIN [Concomitant]
     Indication: COUGH
     Dosage: 2.5MG PER DAY
     Route: 048
     Dates: start: 20060504

REACTIONS (4)
  - EYELID OEDEMA [None]
  - HYPOTONIA [None]
  - MALAISE [None]
  - PALLOR [None]
